FAERS Safety Report 5542151-4 (Version None)
Quarter: 2007Q4

REPORT INFORMATION
  Report Type: 
  Country: None (occurrence: None)
  Receive Date: 20071210
  Receipt Date: 20070810
  Transmission Date: 20080405
  Serious: No
  Sender: FDA-Public Use
  Company Number: US-AMGEN-US235435

PATIENT
  Sex: Male
  Weight: 80 kg

DRUGS (7)
  1. ENBREL [Suspect]
     Indication: RHEUMATOID ARTHRITIS
     Dates: start: 20060601
  2. ENBREL [Suspect]
     Indication: PSORIASIS
  3. VERAPAMIL [Concomitant]
     Route: 065
  4. LISINOPRIL [Concomitant]
     Route: 065
  5. HYDROCHLOROTHIAZIDE [Concomitant]
     Route: 065
  6. LIPITOR [Concomitant]
     Route: 065
  7. NABUMETONE [Concomitant]
     Route: 065

REACTIONS (1)
  - VARICELLA [None]
